FAERS Safety Report 8082570-8 (Version None)
Quarter: 2012Q1

REPORT INFORMATION
  Report Type: 
  Country: None (occurrence: None)
  Receive Date: 20120127
  Receipt Date: 20110222
  Transmission Date: 20120608
  Serious: No
  Sender: FDA-Public Use
  Company Number: US-ABBOTT-11P-163-0706936-00

PATIENT
  Age: 45 Year
  Sex: Female

DRUGS (7)
  1. ZEGERID [Concomitant]
     Indication: PRODUCT USED FOR UNKNOWN INDICATION
  2. VICODIN [Concomitant]
     Indication: PRODUCT USED FOR UNKNOWN INDICATION
     Dosage: 5/500 MG PRN
  3. HUMIRA [Suspect]
     Indication: PSORIATIC ARTHROPATHY
     Dates: start: 20101201
  4. VITAMIN D [Concomitant]
     Indication: PRODUCT USED FOR UNKNOWN INDICATION
     Dosage: 2000 UNITS DAILY
  5. SYMBICORT [Concomitant]
     Indication: PRODUCT USED FOR UNKNOWN INDICATION
     Dosage: 2 PUFFS Q4-6 HOURS
  6. ALBUTEROL [Concomitant]
     Indication: PRODUCT USED FOR UNKNOWN INDICATION
     Dosage: NEBULIZER TAKEN AT NIGHT
  7. NASONEX [Concomitant]
     Indication: PRODUCT USED FOR UNKNOWN INDICATION
     Dosage: 2 SPRAYS QD

REACTIONS (4)
  - INJECTION SITE PAIN [None]
  - JOINT SWELLING [None]
  - ARTHRALGIA [None]
  - VULVOVAGINAL MYCOTIC INFECTION [None]
